FAERS Safety Report 4531366-X (Version None)
Quarter: 2004Q4

REPORT INFORMATION
  Report Type: 
  Country: None (occurrence: None)
  Receive Date: 20041206
  Receipt Date: 20041019
  Transmission Date: 20050328
  Serious: No
  Sender: FDA-Public Use
  Company Number: US_0410106787

PATIENT
  Age: 68 Year
  Sex: Male

DRUGS (4)
  1. CYMBALTA [Suspect]
     Indication: NEUROPATHY PERIPHERAL
     Dosage: 30 MG DAY
     Dates: start: 20040901
  2. PRILOSEC (OMEPRAZOLE RATIOPHARM) [Concomitant]
  3. VITAMIN [Concomitant]
  4. BLOOD PRESSURE PILL [Concomitant]

REACTIONS (2)
  - PRURITUS [None]
  - URINARY HESITATION [None]
